FAERS Safety Report 5222554-8 (Version None)
Quarter: 2007Q1

REPORT INFORMATION
  Report Type: 
  Country: None (occurrence: None)
  Receive Date: 20070129
  Receipt Date: 20070116
  Transmission Date: 20070707
  Serious: Yes (Other)
  Sender: FDA-Public Use
  Company Number: NL-ELI_LILLY_AND_COMPANY-NL200611002433

PATIENT
  Age: 50 Year
  Sex: Female

DRUGS (4)
  1. CYMBALTA [Suspect]
     Indication: DEPRESSION
     Dosage: 60 MG, UNK
     Dates: start: 20060614, end: 20060930
  2. TEMAZEPAM [Concomitant]
     Indication: SLEEP DISORDER
  3. AMITRIPTYLINE HCL [Concomitant]
     Dosage: 50 MG, UNK
  4. TRANXENE [Concomitant]
     Indication: TENSION
     Dosage: 15 MG, UNK

REACTIONS (1)
  - VAGINAL DISCHARGE [None]
